FAERS Safety Report 5672563-X (Version None)
Quarter: 2008Q1

REPORT INFORMATION
  Report Type: 
  Country: None (occurrence: None)
  Receive Date: 20080319
  Receipt Date: 20080311
  Transmission Date: 20080703
  Serious: Yes (Hospitalization)
  Sender: FDA-Public Use
  Company Number: PHNU2008DE01248

PATIENT
  Age: 70 Year
  Sex: Male

DRUGS (6)
  1. ZOMETA [Suspect]
     Indication: OSTEOPOROSIS
     Dosage: 4 MG, UNK
     Route: 042
     Dates: start: 20060101, end: 20080229
  2. MARCUMAR [Concomitant]
  3. ZOLADEX [Concomitant]
     Dosage: EVERY 3 MONTH DEPOT INJECTION
  4. COVERSUM [Concomitant]
  5. METOPROLOL SUCCINATE [Concomitant]
  6. CALCIUM [Concomitant]

REACTIONS (2)
  - INJECTION SITE PAIN [None]
  - PULMONARY EMBOLISM [None]
